FAERS Safety Report 5489066-8 (Version None)
Quarter: 2007Q4

REPORT INFORMATION
  Report Type: 
  Country: None (occurrence: None)
  Receive Date: 20071005
  Receipt Date: 20070907
  Transmission Date: 20080405
  Serious: Yes (Other)
  Sender: FDA-Public Use
  Company Number: PHEH2007US11632

PATIENT
  Age: 49 Year
  Sex: Male
  Weight: 124.3 kg

DRUGS (8)
  1. TEKTURNA [Suspect]
     Indication: HYPERTENSION
     Dosage: 150 MG, QD, ORAL
     Route: 048
     Dates: start: 20070815, end: 20070817
  2. VYTORIN [Concomitant]
  3. HYDRALAZINE HCL [Concomitant]
  4. CLONIDINE [Concomitant]
  5. VERAPAMIL [Concomitant]
  6. ATACAND [Concomitant]
  7. ACETYLSALICYLIC ACID SRT [Concomitant]
  8. HYDROCHLOROTHIAZIDE [Concomitant]

REACTIONS (9)
  - ANGIOEDEMA [None]
  - BLISTER [None]
  - DYSPHAGIA [None]
  - DYSPNOEA [None]
  - LIP OEDEMA [None]
  - OEDEMA PERIPHERAL [None]
  - PERIORBITAL OEDEMA [None]
  - PHARYNGEAL OEDEMA [None]
  - TONGUE OEDEMA [None]
